FAERS Safety Report 23467688 (Version 1)
Quarter: 2024Q1

REPORT INFORMATION
  Report Type: Spontaneous
  Country: DE (occurrence: DE)
  Receive Date: 20240201
  Receipt Date: 20240201
  Transmission Date: 20240409
  Serious: Yes (Hospitalization)
  Sender: FDA-Public Use
  Company Number: DE-MYLANLABS-2023M1106450

PATIENT
  Sex: Female

DRUGS (21)
  1. CIMZIA [Suspect]
     Active Substance: CERTOLIZUMAB PEGOL
     Indication: Rheumatoid arthritis
     Dosage: 400 MILLIGRAM
     Route: 065
     Dates: start: 201601, end: 201602
  2. ERELZI [Suspect]
     Active Substance: ETANERCEPT-SZZS
     Indication: Product used for unknown indication
     Dosage: UNK
     Route: 065
     Dates: start: 202009, end: 202009
  3. ENBREL [Suspect]
     Active Substance: ETANERCEPT
     Indication: Rheumatoid arthritis
     Dosage: UNK
     Route: 065
     Dates: start: 202101, end: 202104
  4. HYRIMOZ [Suspect]
     Active Substance: ADALIMUMAB-ADAZ
     Indication: Rheumatoid arthritis
     Dosage: UNK
     Route: 065
     Dates: start: 202202, end: 202203
  5. HYRIMOZ [Suspect]
     Active Substance: ADALIMUMAB-ADAZ
     Dosage: UNK
     Route: 065
     Dates: start: 202107, end: 202107
  6. FILGOTINIB [Suspect]
     Active Substance: FILGOTINIB
     Indication: Rheumatoid arthritis
     Dosage: 100 MILLIGRAM
     Route: 065
     Dates: start: 202203, end: 202208
  7. KEVZARA [Suspect]
     Active Substance: SARILUMAB
     Indication: Rheumatoid arthritis
     Dosage: 200 MILLIGRAM
     Route: 065
     Dates: start: 202106, end: 202106
  8. KEVZARA [Suspect]
     Active Substance: SARILUMAB
     Dosage: 200 MILLIGRAM
     Route: 065
     Dates: start: 202209, end: 202210
  9. KINERET [Suspect]
     Active Substance: ANAKINRA
     Indication: Rheumatoid arthritis
     Dosage: UNK
     Route: 065
     Dates: start: 202001, end: 202006
  10. KINERET [Suspect]
     Active Substance: ANAKINRA
     Dosage: UNK
     Route: 065
     Dates: start: 201911, end: 201911
  11. METHOTREXATE [Suspect]
     Active Substance: METHOTREXATE
     Indication: Rheumatoid arthritis
     Dosage: 5 MILLIGRAM
     Route: 065
     Dates: start: 20180618
  12. MABTHERA [Suspect]
     Active Substance: RITUXIMAB
     Dosage: 1000 MILLIGRAM
     Route: 065
     Dates: start: 201604
  13. MABTHERA [Suspect]
     Active Substance: RITUXIMAB
     Dosage: 1000 MILLIGRAM
     Route: 065
     Dates: start: 201611
  14. MABTHERA [Suspect]
     Active Substance: RITUXIMAB
     Indication: Rheumatoid arthritis
     Dosage: 500 MILLIGRAM
     Route: 065
     Dates: start: 201706
  15. OLUMIANT [Suspect]
     Active Substance: BARICITINIB
     Dosage: 2 MILLIGRAM
     Route: 065
     Dates: start: 201901
  16. OLUMIANT [Suspect]
     Active Substance: BARICITINIB
     Indication: Rheumatoid arthritis
     Dosage: 4 MILLIGRAM
     Route: 065
     Dates: start: 201801, end: 201810
  17. OLUMIANT [Suspect]
     Active Substance: BARICITINIB
     Dosage: 4 MILLIGRAM
     Route: 065
     Dates: start: 201911, end: 201912
  18. OLUMIANT [Suspect]
     Active Substance: BARICITINIB
     Dosage: 4 MILLIGRAM
     Route: 065
     Dates: end: 201908
  19. ORENCIA [Suspect]
     Active Substance: ABATACEPT
     Indication: Rheumatoid arthritis
     Dosage: UNK (START DATE: ??-MAR-2023)
     Route: 065
     Dates: end: 202305
  20. SIMPONI [Suspect]
     Active Substance: GOLIMUMAB
     Indication: Rheumatoid arthritis
     Dosage: 50 MILLIGRAM
     Route: 065
     Dates: start: 202108, end: 202201
  21. XELJANZ [Suspect]
     Active Substance: TOFACITINIB CITRATE
     Indication: Rheumatoid arthritis
     Dosage: UNK
     Route: 065
     Dates: start: 201711, end: 201712

REACTIONS (4)
  - Rheumatoid arthritis [Recovered/Resolved]
  - COVID-19 [Unknown]
  - Urinary tract infection [Unknown]
  - Gastritis [Unknown]

NARRATIVE: CASE EVENT DATE: 20230223
